FAERS Safety Report 20674509 (Version 1)
Quarter: 2022Q2

REPORT INFORMATION
  Report Type: Spontaneous
  Country: JP (occurrence: JP)
  Receive Date: 20220405
  Receipt Date: 20220405
  Transmission Date: 20220721
  Serious: Yes (Hospitalization, Other)
  Sender: FDA-Public Use
  Company Number: JP-PFIZER INC-202200328064

PATIENT
  Age: 34 Month
  Sex: Female
  Weight: 10 kg

DRUGS (7)
  1. MEROPENEM [Suspect]
     Active Substance: MEROPENEM
     Indication: Meningitis bacterial
     Dosage: 120 MG/KG, DAILY
  2. MEROPENEM [Suspect]
     Active Substance: MEROPENEM
     Indication: Listeriosis
  3. GENTAMICIN [Suspect]
     Active Substance: GENTAMICIN
     Indication: Listeriosis
     Dosage: 7.5 MG/KG, DAILY
  4. DEXAMETHASONE [Concomitant]
     Active Substance: DEXAMETHASONE
     Indication: Meningitis bacterial
     Dosage: 0.17 MG/KG, 4X/DAY
  5. CEFOTAXIME [Concomitant]
     Active Substance: CEFOTAXIME SODIUM
     Indication: Meningitis bacterial
     Dosage: 300 MG/KG, DAILY
  6. MANNITOL [Concomitant]
     Active Substance: MANNITOL
     Indication: Meningitis bacterial
     Dosage: 50 MG/KG, 3X/DAY
  7. AMPICILLIN [Concomitant]
     Active Substance: AMPICILLIN
     Indication: Listeriosis
     Dosage: 400 MG/KG, DAILY

REACTIONS (1)
  - Hepatic function abnormal [Recovering/Resolving]
